FAERS Safety Report 10098134 (Version 1)
Quarter: 2014Q2

REPORT INFORMATION
  Report Type: Spontaneous
  Country: ES (occurrence: None)
  Receive Date: 20140421
  Receipt Date: 20140421
  Transmission Date: 20141212
  Serious: Yes (Other)
  Sender: FDA-Public Use
  Company Number: ES-ZYDUS-003052

PATIENT
  Age: 59 Year
  Sex: Female

DRUGS (2)
  1. LEVOFLOXACINE (LEVOFLOXACIN) [Suspect]
     Indication: UPPER RESPIRATORY TRACT INFECTION
     Dosage: 1 DAYS
  2. STEROID [Concomitant]

REACTIONS (2)
  - Autoimmune hepatitis [None]
  - Hepatotoxicity [None]
